FAERS Safety Report 4748026-2 (Version None)
Quarter: 2005Q3

REPORT INFORMATION
  Report Type: 
  Country: None (occurrence: None)
  Receive Date: 20050818
  Receipt Date: 20050815
  Transmission Date: 20060218
  Serious: Yes (Life-Threatening)
  Sender: FDA-Public Use
  Company Number: 2005GB01569

PATIENT
  Age: 65 Year
  Sex: Female
  Weight: 80 kg

DRUGS (9)
  1. LISINOPRIL [Suspect]
     Route: 048
     Dates: end: 20050519
  2. SIMVASTATIN [Suspect]
     Indication: HYPERLIPIDAEMIA
     Route: 048
     Dates: end: 20050519
  3. DICLOFENAC [Suspect]
     Indication: PAIN
     Route: 048
     Dates: end: 20050519
  4. FUROSEMIDE [Suspect]
     Route: 048
     Dates: end: 20050519
  5. CLOPIDOGREL BISULFATE [Concomitant]
     Dates: end: 20050519
  6. ESOMEPRAZOLE [Concomitant]
     Route: 048
     Dates: end: 20050519
  7. ALLOPURINOL [Concomitant]
     Route: 048
     Dates: end: 20050519
  8. ATENOLOL [Concomitant]
     Route: 048
     Dates: end: 20050519
  9. AMITRIPTYLINE HCL [Concomitant]
     Route: 048

REACTIONS (3)
  - CARDIAC ARREST [None]
  - RENAL FAILURE ACUTE [None]
  - RHABDOMYOLYSIS [None]
